FAERS Safety Report 8159851-2 (Version None)
Quarter: 2012Q1

REPORT INFORMATION
  Report Type: 
  Country: None (occurrence: None)
  Receive Date: 20120223
  Receipt Date: 20120217
  Transmission Date: 20120608
  Serious: Yes (Other)
  Sender: FDA-Public Use
  Company Number: BR-PFIZER INC-2012043242

PATIENT
  Age: 46 Year
  Sex: Female
  Weight: 76 kg

DRUGS (8)
  1. FLUOXETINE [Concomitant]
     Dosage: UNK, 1X/DAY
  2. VENLAFAXINE [Concomitant]
     Dosage: UNK
  3. ALPRAZOLAM [Suspect]
     Indication: SEDATIVE THERAPY
     Dosage: 2 MG, 1X/DAY
     Route: 048
     Dates: start: 20110201
  4. CLONAZEPAM [Concomitant]
     Dosage: ONE TABLET ONCE A DAY
  5. DEOCIL [Concomitant]
     Dosage: UNK
  6. KETOPROFEN [Concomitant]
     Dosage: UNK
  7. TRAMADOL [Concomitant]
     Dosage: UNK
  8. OMEPRAZOLE [Concomitant]
     Dosage: UNK

REACTIONS (2)
  - BREAST MASS [None]
  - PAIN [None]
